FAERS Safety Report 9155951 (Version 2)
Quarter: 2013Q1

REPORT INFORMATION
  Report Type: Report from Study
  Country: DE (occurrence: DE)
  Receive Date: 20130311
  Receipt Date: 20130312
  Transmission Date: 20140127
  Serious: Yes (Hospitalization, Other)
  Sender: FDA-Public Use
  Company Number: DE-PFIZER INC-2011175801

PATIENT
  Age: 71 Year
  Sex: Female
  Weight: 106 kg

DRUGS (22)
  1. TEMSIROLIMUS [Suspect]
     Dosage: 50 MG, UNK
     Dates: start: 20110512, end: 20110825
  2. BENDAMUSTINE [Suspect]
     Dosage: 180 MG, UNK
     Dates: start: 20110511, end: 20110825
  3. RITUXIMAB [Suspect]
     Dosage: 750 MG, UNK
     Dates: start: 20110520, end: 20110825
  4. L-THYROXIN [Concomitant]
     Dosage: 200 UG, 1X/DAY
     Route: 048
     Dates: start: 2009
  5. AMLODIPINE [Concomitant]
     Indication: HYPERTENSION
     Dosage: 10 MG, 1X/DAY
     Route: 048
     Dates: start: 201006
  6. METOPROLOL [Concomitant]
     Indication: HYPERTENSION
     Dosage: 200 MG, 1X/DAY
     Route: 048
     Dates: start: 2008
  7. ENALAPRIL [Concomitant]
     Indication: HYPERTENSION
     Dosage: 10 MG, 2X/DAY
     Route: 048
     Dates: start: 2008
  8. SIMVASTATIN [Concomitant]
     Indication: HYPERLIPIDAEMIA
     Dosage: 20 MG, 1X/DAY
     Route: 048
     Dates: start: 201010
  9. TORASEMIDE [Concomitant]
     Indication: HYPERTENSION
     Dosage: 20 MG, 1X/DAY
     Route: 048
     Dates: start: 2009
  10. ZYLORIC ^GLAXO WELLCOME^ [Concomitant]
     Indication: PREMEDICATION
     Dosage: 300 MG, UNK
     Route: 048
     Dates: start: 20110520
  11. BENURON [Concomitant]
     Indication: PREMEDICATION
     Dosage: 2 G, UNK
     Route: 048
     Dates: start: 20110520
  12. CETIRIZINE [Concomitant]
     Indication: PREMEDICATION
     Dosage: 20 MG, UNK
     Route: 048
     Dates: start: 20110520
  13. KEVATRIL [Concomitant]
     Indication: PREMEDICATION
     Dosage: 1 MG, UNK
     Route: 042
     Dates: start: 20110511
  14. FENISTIL [Concomitant]
     Indication: PREMEDICATION
     Dosage: 4 MG, UNK
     Route: 042
     Dates: start: 20110512
  15. PANTOZOL [Concomitant]
     Indication: PROPHYLAXIS
     Dosage: 80 MG, 1X/DAY
     Route: 048
     Dates: start: 20110518
  16. METOCLOPRAMIDE [Concomitant]
     Indication: NAUSEA
     Dosage: 35 GTT, 1X/DAY
     Route: 048
     Dates: start: 20110518
  17. LOPEDIUM [Concomitant]
     Indication: DIARRHOEA
     Dosage: UNK
     Route: 048
     Dates: start: 20110518
  18. CIPROBAY [Concomitant]
     Indication: NAIL BED INFECTION
     Dosage: 500 MG, 1X/DAY
     Route: 048
     Dates: start: 20110601, end: 20110603
  19. VOMEX A ^ENDOPHARM^ [Concomitant]
     Indication: VOMITING
     Dosage: 62 MG, 1X/DAY
     Route: 042
     Dates: start: 20110615, end: 20110615
  20. REKAWAN [Concomitant]
     Indication: HYPOKALAEMIA
     Dosage: 13.4 MMOL, UNK
     Route: 048
     Dates: start: 20110617
  21. CALCIUM [Concomitant]
     Indication: HYPOCALCAEMIA
     Dosage: 2 G, 1X/DAY
     Route: 048
     Dates: start: 20110617
  22. ASS [Concomitant]
     Indication: PROPHYLAXIS
     Dosage: 100 MG, 1X/DAY
     Route: 048
     Dates: start: 20110617

REACTIONS (1)
  - Angioedema [Recovered/Resolved]
